FAERS Safety Report 4754172-X (Version None)
Quarter: 2005Q3

REPORT INFORMATION
  Report Type: 
  Country: None (occurrence: None)
  Receive Date: 20050826
  Receipt Date: 19930217
  Transmission Date: 20060218
  Serious: Yes (Hospitalization)
  Sender: FDA-Public Use
  Company Number: JP-ABBOTT-05P-087-0308295-00

PATIENT
  Age: 28 Year
  Sex: Female

DRUGS (5)
  1. FERRO GRADUMET [Suspect]
     Indication: ANAEMIA
     Route: 048
     Dates: start: 19930203, end: 19930210
  2. DICLOFENAC SODIUM [Concomitant]
     Indication: PAIN
     Route: 048
     Dates: start: 19930209, end: 19930209
  3. BUTYLSCOPOLAMINE BROMIDE [Concomitant]
     Indication: ABDOMINAL PAIN UPPER
     Route: 030
     Dates: start: 19930209, end: 19930209
  4. OXETHAZAINE [Concomitant]
     Indication: DUODENAL ULCER
     Route: 048
     Dates: start: 19930209, end: 19930209
  5. DIAZEPAM [Concomitant]
     Indication: INSOMNIA
     Route: 048
     Dates: start: 19930209, end: 19930209

REACTIONS (2)
  - ILEUS [None]
  - INTESTINAL OBSTRUCTION [None]
